FAERS Safety Report 6934244-1 (Version None)
Quarter: 2010Q3

REPORT INFORMATION
  Report Type: 
  Country: None (occurrence: None)
  Receive Date: 20100820
  Receipt Date: 20100810
  Transmission Date: 20110219
  Serious: No
  Sender: FDA-Public Use
  Company Number: US-PFIZER INC-2010101233

PATIENT
  Sex: Female
  Weight: 44.444 kg

DRUGS (4)
  1. RELPAX [Suspect]
     Indication: MIGRAINE
     Dosage: 40 MG, AS NEEDED
     Route: 048
     Dates: start: 20070101
  2. SYNTHROID [Concomitant]
     Indication: HYPOTHYROIDISM
     Dosage: UNK
  3. LORAZEPAM [Concomitant]
     Indication: SLEEP DISORDER
     Dosage: UNK
  4. FEMARA [Concomitant]
     Indication: HORMONE THERAPY
     Dosage: UNK

REACTIONS (1)
  - DIZZINESS [None]
